FAERS Safety Report 8072051-X (Version None)
Quarter: 2012Q1

REPORT INFORMATION
  Report Type: 
  Country: None (occurrence: None)
  Receive Date: 20120124
  Receipt Date: 20120124
  Transmission Date: 20120608
  Serious: Yes (Life-Threatening)
  Sender: FDA-Public Use
  Company Number: None

PATIENT
  Age: 64 Year
  Sex: Male
  Weight: 54.4316 kg

DRUGS (1)
  1. LISINOPRIL [Suspect]
     Indication: HYPERTENSION
     Dosage: 20 MG EVERY DAY PO
     Route: 048
     Dates: start: 20101014, end: 20110713

REACTIONS (6)
  - SWOLLEN TONGUE [None]
  - URTICARIA [None]
  - OEDEMA PERIPHERAL [None]
  - ANGIOEDEMA [None]
  - SWELLING FACE [None]
  - PRURITUS [None]
